FAERS Safety Report 8076651-2 (Version None)
Quarter: 2012Q1

REPORT INFORMATION
  Report Type: 
  Country: None (occurrence: None)
  Receive Date: 20120127
  Receipt Date: 20120125
  Transmission Date: 20120608
  Serious: Yes (Death, Hospitalization, Other)
  Sender: FDA-Public Use
  Company Number: PHFR2012GB000450

PATIENT
  Sex: Female

DRUGS (15)
  1. EPADERM [Concomitant]
     Dosage: 500 G, UNK
  2. BISOPROLOL FUMARATE [Concomitant]
     Dosage: 2.5 MG, QD
  3. OMEPRAZOLE [Concomitant]
     Dosage: 40 MG, UNK
  4. WARFARIN SODIUM [Concomitant]
     Dosage: 3 MG, UNK
  5. AMIODARONE HCL [Suspect]
     Dosage: 200 MG, UNK
  6. ACETAMINOPHEN [Concomitant]
     Dosage: 500 MG, UNK
  7. ALENDRONIC ACID [Concomitant]
     Dosage: 70 MG, UNK
  8. ELASTICATED VISCOSE [Concomitant]
  9. NITROGLYCERIN [Concomitant]
     Dosage: 400 UG, UNK
  10. FUROSEMIDE [Concomitant]
     Dosage: 40 MG, UNK
  11. WARFARIN SODIUM [Concomitant]
     Dosage: 1 MG, UNK
  12. RAMIPRIL [Concomitant]
     Dosage: 5 MG, QD
  13. CALCEOS [Concomitant]
     Dosage: 1 UKN, BID
  14. WARFARIN SODIUM [Concomitant]
     Dosage: 5 MG, UNK
  15. LUCENTIS [Suspect]

REACTIONS (5)
  - PNEUMONIA [None]
  - PNEUMONITIS [None]
  - ATRIAL FIBRILLATION [None]
  - TRANSIENT ISCHAEMIC ATTACK [None]
  - MYOCARDIAL INFARCTION [None]
